FAERS Safety Report 15263316 (Version 1)
Quarter: 2018Q3

REPORT INFORMATION
  Report Type: Spontaneous
  Country: CH (occurrence: CH)
  Receive Date: 20180810
  Receipt Date: 20180810
  Transmission Date: 20181010
  Serious: Yes (Hospitalization, Other)
  Sender: FDA-Public Use
  Company Number: CH-MACLEODS PHARMACEUTICALS US LTD-MAC2018016290

PATIENT

DRUGS (10)
  1. ALCOHOL. [Concomitant]
     Active Substance: ALCOHOL
     Indication: PRODUCT USED FOR UNKNOWN INDICATION
     Dosage: 1.42 PERCENT
     Route: 065
     Dates: start: 2016
  2. TRAMADOL HYDROCHLORIDE. [Concomitant]
     Active Substance: TRAMADOL HYDROCHLORIDE
     Indication: PRODUCT USED FOR UNKNOWN INDICATION
     Dosage: 800 MILLIGRAM, EXTENDED RELEASE
     Route: 065
     Dates: start: 2017
  3. QUETIAPINE. [Suspect]
     Active Substance: QUETIAPINE
     Indication: PRODUCT USED FOR UNKNOWN INDICATION
     Dosage: 2.5 GRAM, SINGLE, TOTAL, EXTENDED RELEASE
     Route: 048
     Dates: start: 2016
  4. QUETIAPINE. [Suspect]
     Active Substance: QUETIAPINE
     Dosage: 1 GRAM, SINGLE, TOTAL, IMEDIATE RELEASED
     Route: 048
     Dates: start: 2016
  5. ALCOHOL. [Concomitant]
     Active Substance: ALCOHOL
     Dosage: 1.91 PERCENT
     Route: 065
     Dates: start: 2017
  6. DICLOFENAC [Concomitant]
     Active Substance: DICLOFENAC
     Indication: PRODUCT USED FOR UNKNOWN INDICATION
     Dosage: 1.5 MILLIGRAM, EXTENDED RELEASE
     Route: 065
     Dates: start: 2017
  7. QUETIAPINE. [Suspect]
     Active Substance: QUETIAPINE
     Dosage: 1 GRAM, IMMEDIATE RELEASE
     Route: 065
     Dates: start: 2017
  8. PARACETAMOL [Suspect]
     Active Substance: ACETAMINOPHEN
     Indication: PRODUCT USED FOR UNKNOWN INDICATION
     Dosage: 65 GRAM, SINGLE, OVERDOSE,  IMEDIATE RELEASED
     Route: 048
     Dates: start: 2016
  9. PARACETAMOL [Suspect]
     Active Substance: ACETAMINOPHEN
     Dosage: 65 GRAM, SINGLE, IMMEDIATE RELEASE
     Route: 048
     Dates: start: 2017
  10. PIPAMPERONE [Concomitant]
     Active Substance: PIPAMPERONE
     Indication: PRODUCT USED FOR UNKNOWN INDICATION
     Dosage: UNK,  IMEDIATE RELEASED
     Route: 048
     Dates: start: 2016

REACTIONS (8)
  - Hepatotoxicity [Recovered/Resolved]
  - Hypotension [Recovered/Resolved]
  - Toxicity to various agents [Recovered/Resolved]
  - Coma [Recovered/Resolved]
  - Drug interaction [Recovered/Resolved]
  - Intentional overdose [Recovered/Resolved]
  - Altered state of consciousness [Recovered/Resolved]
  - Hypotonia [Recovered/Resolved]

NARRATIVE: CASE EVENT DATE: 2016
